FAERS Safety Report 8970483 (Version 1)
Quarter: 2012Q4

REPORT INFORMATION
  Report Type: 
  Country: DE (occurrence: DE)
  Receive Date: 20121217
  Receipt Date: 20121217
  Transmission Date: 20130627
  Serious: Yes (Disabling, Other)
  Sender: FDA-Public Use
  Company Number: DE-009507513-1212DEU004994

PATIENT
  Age: 23 Year
  Sex: Male

DRUGS (1)
  1. PROPECIA 1MG FILMTABLETTEN [Suspect]
     Dosage: 1 mg, qd
     Route: 048
     Dates: start: 20100701, end: 20110101

REACTIONS (1)
  - Anxiety [Unknown]
